APPROVED DRUG PRODUCT: DIAZEPAM
Active Ingredient: DIAZEPAM
Strength: 50MG/10ML (5MG/ML)
Dosage Form/Route: INJECTABLE;INJECTION
Application: A071583 | Product #001 | TE Code: AP
Applicant: HOSPIRA INC
Approved: Oct 13, 1987 | RLD: No | RS: Yes | Type: RX